FAERS Safety Report 20310057 (Version 1)
Quarter: 2022Q1

REPORT INFORMATION
  Report Type: Report from Study
  Country: US (occurrence: US)
  Receive Date: 20220107
  Receipt Date: 20220107
  Transmission Date: 20220423
  Serious: Yes (Hospitalization)
  Sender: FDA-Public Use
  Company Number: US-GILEAD-2021-0563580

PATIENT
  Sex: Female

DRUGS (18)
  1. AZTREONAM LYSINE [Suspect]
     Active Substance: AZTREONAM LYSINE
     Indication: Pseudomonas infection
     Dosage: 75 MG, Q8H EVERY OTHER MONTH
     Route: 055
  2. AZTREONAM LYSINE [Suspect]
     Active Substance: AZTREONAM LYSINE
     Dosage: UNK, QD
     Route: 055
  3. ABICIN [AMIKACIN SULFATE] [Concomitant]
  4. TYLENOL [Concomitant]
     Active Substance: ACETAMINOPHEN
  5. MUCOMYST [Concomitant]
     Active Substance: ACETYLCYSTEINE
  6. FOSAMAX [Concomitant]
     Active Substance: ALENDRONATE SODIUM
  7. AZITHROMYCIN [Concomitant]
     Active Substance: AZITHROMYCIN
  8. ETHAMBUTOL HYDROCHLORIDE [Concomitant]
     Active Substance: ETHAMBUTOL HYDROCHLORIDE
  9. ALBUTEROL [Concomitant]
     Active Substance: ALBUTEROL
  10. LEXAPRO [Concomitant]
     Active Substance: ESCITALOPRAM OXALATE
  11. LEVOTHYROXINE SODIUM [Concomitant]
     Active Substance: LEVOTHYROXINE SODIUM
  12. METOPROLOL TARTRATE [Concomitant]
     Active Substance: METOPROLOL TARTRATE
  13. PREDNISONE [Concomitant]
     Active Substance: PREDNISONE
  14. CRESTOR [Concomitant]
     Active Substance: ROSUVASTATIN CALCIUM
  15. BUDESONIDE [Concomitant]
     Active Substance: BUDESONIDE
  16. AMIKACIN [Concomitant]
     Active Substance: AMIKACIN
  17. MUCOMYST [Concomitant]
     Active Substance: ACETYLCYSTEINE
  18. DOXYCYCLINE HYCLATE [Concomitant]
     Active Substance: DOXYCYCLINE HYCLATE

REACTIONS (11)
  - Oxygen saturation decreased [Unknown]
  - Memory impairment [Unknown]
  - Infection [Unknown]
  - Dizziness [Not Recovered/Not Resolved]
  - Dyspnoea [Unknown]
  - Vomiting [Unknown]
  - Decreased appetite [Unknown]
  - Weight decreased [Unknown]
  - Treatment noncompliance [Unknown]
  - Product administration error [Unknown]
  - Off label use [Not Recovered/Not Resolved]
